FAERS Safety Report 6755442-6 (Version None)
Quarter: 2010Q2

REPORT INFORMATION
  Report Type: 
  Country: None (occurrence: None)
  Receive Date: 20100604
  Receipt Date: 20100521
  Transmission Date: 20101027
  Serious: Yes (Hospitalization)
  Sender: FDA-Public Use
  Company Number: DE-RANBAXY-2010RR-34170

PATIENT
  Age: 67 Year
  Sex: Male

DRUGS (9)
  1. ASPIRIN [Suspect]
  2. ENALAPRIL [Suspect]
  3. DILTIAZEM [Suspect]
  4. EVEROLIMUS [Suspect]
     Indication: IMMUNOSUPPRESSION
     Dosage: UNK
  5. MYCOPHENOLATE MOFETIL [Suspect]
  6. BISOPROLOL [Suspect]
  7. PRAVASTATIN [Suspect]
  8. ESOMEPRAZOLE [Suspect]
  9. ALLOPURINOL [Suspect]

REACTIONS (3)
  - ANGIOEDEMA [None]
  - DYSPHAGIA [None]
  - SPEECH DISORDER [None]
